FAERS Safety Report 4674607-0 (Version None)
Quarter: 2005Q2

REPORT INFORMATION
  Report Type: 
  Country: None (occurrence: None)
  Receive Date: 20050526
  Receipt Date: 20050307
  Transmission Date: 20051028
  Serious: Yes (Other)
  Sender: FDA-Public Use
  Company Number: US-GLAXOSMITHKLINE-A0548770A

PATIENT
  Age: 69 Year
  Sex: Female
  Weight: 47 kg

DRUGS (5)
  1. COMMIT [Suspect]
     Indication: SMOKING CESSATION THERAPY
     Dosage: 4MG FIVE TIMES PER DAY
     Route: 048
     Dates: start: 20050101, end: 20050301
  2. MYSOLINE [Suspect]
     Indication: EPILEPSY
     Dosage: 250MG TWICE PER DAY
  3. LAMICTAL [Concomitant]
     Indication: EPILEPSY
     Dosage: 100MG FOUR TIMES PER DAY
  4. SYNTHROID [Concomitant]
     Indication: DRUG USE FOR UNKNOWN INDICATION
     Dosage: .2MG PER DAY
  5. FOSAMAX [Concomitant]
     Indication: DRUG USE FOR UNKNOWN INDICATION

REACTIONS (3)
  - CONVULSION [None]
  - DISEASE RECURRENCE [None]
  - HEADACHE [None]
